FAERS Safety Report 10265777 (Version 1)
Quarter: 2014Q2

REPORT INFORMATION
  Report Type: Spontaneous
  Country: US (occurrence: US)
  Receive Date: 20140627
  Receipt Date: 20140627
  Transmission Date: 20141212
  Serious: Yes (Hospitalization)
  Sender: FDA-Public Use
  Company Number: US-GLAXOSMITHKLINE-A1076683A

PATIENT
  Age: 60 Year
  Sex: Female

DRUGS (1)
  1. ADVAIR [Suspect]
     Indication: RESPIRATORY DISORDER
     Route: 065
     Dates: start: 20080409

REACTIONS (3)
  - Drug ineffective [Unknown]
  - Asthma [Unknown]
  - Multiple allergies [Unknown]
